FAERS Safety Report 8067498-1 (Version None)
Quarter: 2012Q1

REPORT INFORMATION
  Report Type: 
  Country: None (occurrence: None)
  Receive Date: 20120124
  Receipt Date: 20120118
  Transmission Date: 20120608
  Serious: No
  Sender: FDA-Public Use
  Company Number: US-PFIZER INC-2012014479

PATIENT
  Sex: Female

DRUGS (4)
  1. PRISTIQ [Suspect]
     Dosage: 50 MG, UNK
     Dates: start: 20110101
  2. PRISTIQ [Suspect]
     Dosage: 25 MG, UNK
  3. CELEXA [Concomitant]
     Dosage: 10 MG, UNK
  4. BUSPAR [Concomitant]
     Dosage: UNK

REACTIONS (4)
  - DRUG INTOLERANCE [None]
  - NERVOUSNESS [None]
  - ANXIETY [None]
  - DRUG INEFFECTIVE [None]
